FAERS Safety Report 8492434-3 (Version None)
Quarter: 2012Q3

REPORT INFORMATION
  Report Type: 
  Country: None (occurrence: None)
  Receive Date: 20120706
  Receipt Date: 20120703
  Transmission Date: 20120928
  Serious: Yes (Hospitalization, Other)
  Sender: FDA-Public Use
  Company Number: US-PFIZER INC-2010144960

PATIENT
  Sex: Female

DRUGS (8)
  1. CHANTIX [Suspect]
     Dosage: (CONTINUING MONTH PACK) 1 MG
     Route: 048
     Dates: start: 20081114, end: 20090201
  2. ADDERALL 5 [Concomitant]
     Indication: ATTENTION DEFICIT/HYPERACTIVITY DISORDER
     Dosage: UNK
     Dates: start: 20060101
  3. CYMBALTA [Concomitant]
     Indication: DEPRESSION
     Dosage: UNK
     Dates: start: 20070101
  4. CHANTIX [Suspect]
     Indication: SMOKING CESSATION THERAPY
     Dosage: STARTING MOTH PACK
     Route: 048
     Dates: start: 20081013, end: 20081113
  5. ALBUTEROL [Concomitant]
     Indication: CHRONIC OBSTRUCTIVE PULMONARY DISEASE
     Dosage: UNK
     Dates: start: 20060101
  6. TOPAMAX [Concomitant]
     Indication: DEPRESSION
     Dosage: UNK
     Dates: start: 20070101
  7. COPAXONE [Concomitant]
     Indication: MULTIPLE SCLEROSIS
     Dosage: UNK
     Dates: start: 20030101
  8. TOPAMAX [Concomitant]
     Indication: BIPOLAR DISORDER

REACTIONS (7)
  - PARANOIA [None]
  - ANXIETY [None]
  - ANGER [None]
  - DEPRESSION [None]
  - SUICIDE ATTEMPT [None]
  - BIPOLAR DISORDER [None]
  - AGGRESSION [None]
